FAERS Safety Report 4655430-X (Version None)
Quarter: 2005Q2

REPORT INFORMATION
  Report Type: 
  Country: None (occurrence: None)
  Receive Date: 20050505
  Receipt Date: 20050427
  Transmission Date: 20051028
  Serious: Yes (Other)
  Sender: FDA-Public Use
  Company Number: 2005-04-2083

PATIENT
  Age: 70 Year
  Sex: Female

DRUGS (2)
  1. TEMODAR [Suspect]
     Indication: METASTASES TO CENTRAL NERVOUS SYSTEM
     Dosage: 75 MG/M^2 QD ORAL
     Route: 048
  2. RADIATION THERAPY [Concomitant]

REACTIONS (2)
  - BLOOD GLUCOSE INCREASED [None]
  - FATIGUE [None]
